FAERS Safety Report 8094868-8 (Version None)
Quarter: 2012Q1

REPORT INFORMATION
  Report Type: 
  Country: None (occurrence: None)
  Receive Date: 20120130
  Receipt Date: 20120123
  Transmission Date: 20120608
  Serious: Yes (Hospitalization)
  Sender: FDA-Public Use
  Company Number: US-BIOGENIDEC-2011BI020042

PATIENT
  Age: 51 Year
  Sex: Female

DRUGS (1)
  1. TYSABRI [Suspect]
     Indication: MULTIPLE SCLEROSIS
     Route: 042
     Dates: start: 20100730, end: 20111128

REACTIONS (4)
  - MULTIPLE SCLEROSIS [None]
  - PROCEDURAL PAIN [None]
  - MUSCLE SPASMS [None]
  - OSTEONECROSIS [None]
